FAERS Safety Report 10048117 (Version 4)
Quarter: 2014Q2

REPORT INFORMATION
  Report Type: Spontaneous
  Country: DE (occurrence: DE)
  Receive Date: 20140331
  Receipt Date: 20140530
  Transmission Date: 20141212
  Serious: Yes (Life-Threatening, Other)
  Sender: FDA-Public Use
  Company Number: DE-PFIZER INC-2014055215

PATIENT
  Age: 39 Year
  Sex: Male
  Weight: 84 kg

DRUGS (2)
  1. LYRICA [Suspect]
     Indication: DRUG DEPENDENCE
     Dosage: 300 MG (UP TO 4 TABLETS A DAY)
     Dates: start: 201401, end: 201403
  2. IBUPROFEN [Concomitant]
     Dosage: 2 X 600 MG TABLETS AS NEEDED MAX.

REACTIONS (10)
  - Drug abuse [Recovered/Resolved]
  - Drug dependence [Recovered/Resolved]
  - Drug withdrawal syndrome [Unknown]
  - Restlessness [Unknown]
  - Sleep disorder [Unknown]
  - Discomfort [Unknown]
  - Hyperhidrosis [Unknown]
  - Elevated mood [Unknown]
  - Therapeutic response changed [Unknown]
  - Pre-existing condition improved [Unknown]
